FAERS Safety Report 13089623 (Version 1)
Quarter: 2017Q1

REPORT INFORMATION
  Report Type: Spontaneous
  Country: US (occurrence: US)
  Receive Date: 20170105
  Receipt Date: 20170105
  Transmission Date: 20170428
  Serious: Yes (Other)
  Sender: FDA-Public Use
  Company Number: US-BAYER-2017-000250

PATIENT
  Age: 86 Year
  Sex: Female

DRUGS (38)
  1. BENADRYL [Concomitant]
     Active Substance: DIPHENHYDRAMINE HYDROCHLORIDE
     Indication: URTICARIA
     Dosage: UNK UNK, PRN
  2. VITAMIN B12 [Concomitant]
     Active Substance: CYANOCOBALAMIN
     Dosage: 1000 MG, QD
  3. CINNAMON. [Concomitant]
     Active Substance: CINNAMON
     Dosage: UNK UNK, QD
  4. POTASSIUM [Concomitant]
     Active Substance: POTASSIUM
     Dosage: 2 DF, QD
  5. CYCLOSPORINE. [Concomitant]
     Active Substance: CYCLOSPORINE
     Dosage: 1 DF, BID
  6. VITAMIN C [Concomitant]
     Active Substance: ASCORBIC ACID
     Dosage: 500 MG, UNK
  7. PRAMIPEXOLE. [Concomitant]
     Active Substance: PRAMIPEXOLE
     Dosage: 1 DF, QD BEDTIME
  8. TOPIRAMATE. [Concomitant]
     Active Substance: TOPIRAMATE
     Dosage: 1.5 DF, QD BEDTIME
  9. CALCIUM [Concomitant]
     Active Substance: CALCIUM
  10. MAGNESIUM [Concomitant]
     Active Substance: MAGNESIUM
  11. CHROMIUM [Concomitant]
     Active Substance: CHROMIC CHLORIDE\CHROMIUM
     Dosage: 2 DF, QD
  12. FESOTERODINE [Concomitant]
     Active Substance: FESOTERODINE
     Dosage: 1 DF, QD
  13. LYRICA [Concomitant]
     Active Substance: PREGABALIN
     Dosage: 1 DF, BID
     Route: 048
     Dates: start: 20150713
  14. GLUCOTROL [Concomitant]
     Active Substance: GLIPIZIDE
  15. ZOLOFT [Concomitant]
     Active Substance: SERTRALINE HYDROCHLORIDE
  16. LIDOCAINE. [Concomitant]
     Active Substance: LIDOCAINE
     Dosage: UNK UNK, PRN UP TO 3 PER DAY FOR 12 HOURS
  17. METFORMIN [Concomitant]
     Active Substance: METFORMIN HYDROCHLORIDE
     Dosage: 2 DF, QD
  18. LOSARTAN. [Concomitant]
     Active Substance: LOSARTAN
     Dosage: 0.5 DF, QD
  19. MUPIROCIN. [Concomitant]
     Active Substance: MUPIROCIN
     Dosage: UNK UNK, PRN
  20. TYLENOL ARTHRITIS PAIN [Concomitant]
     Active Substance: ACETAMINOPHEN
     Dosage: UNK UNK, PRN
  21. BIOTIN [Concomitant]
     Active Substance: BIOTIN
     Dosage: 1 DF, QD
  22. WARFARIN [Concomitant]
     Active Substance: WARFARIN
     Dosage: 7.5 MG 4-5 DYS AND 5 MG 2-3 DYS
  23. METOPROLOL. [Concomitant]
     Active Substance: METOPROLOL
     Dosage: 0.5 DF, QD AT NIGHT
  24. EPIPEN [Concomitant]
     Active Substance: EPINEPHRINE
     Dosage: UNK UNK, PRN
  25. ZYRTEC [Concomitant]
     Active Substance: CETIRIZINE HYDROCHLORIDE
  26. ACETAZOLAMIDE. [Concomitant]
     Active Substance: ACETAZOLAMIDE
     Dosage: 1 DF, QD AT NIGHT
  27. TIZANIDINE. [Concomitant]
     Active Substance: TIZANIDINE
     Dosage: 1 DF, QD 1 TABLET NIGHTLY OR IF NEEDED EVERY 8HRS
  28. ALBUTEROL. [Concomitant]
     Active Substance: ALBUTEROL
     Dosage: UNK UNK, PRN
  29. STOOL SOFTENER (DOCUSATE CALCIUM) [Concomitant]
     Active Substance: DOCUSATE CALCIUM
     Dosage: UNK 1-2 DOSAGE
  30. BEXTRA [Concomitant]
     Active Substance: VALDECOXIB
  31. METHENAMINE HIPPURATE [METHENAMINE HIPPURATE] [Concomitant]
     Dosage: 0.5 DF, QD
     Route: 048
  32. BAYER ASPIRIN [Suspect]
     Active Substance: ASPIRIN
  33. ACETAZOLAMIDE. [Concomitant]
     Active Substance: ACETAZOLAMIDE
     Dosage: 1 DF, QD
  34. SERTRALINE [Concomitant]
     Active Substance: SERTRALINE HYDROCHLORIDE
     Dosage: 1 DF, QD
  35. OMEPRAZOLE. [Concomitant]
     Active Substance: OMEPRAZOLE
     Dosage: 1 DF, QD
  36. VOLTAREN [Concomitant]
     Active Substance: DICLOFENAC SODIUM
     Indication: ARTHRALGIA
     Dosage: UNK UNK, BID
  37. VITAMIN D3 [Concomitant]
     Active Substance: CHOLECALCIFEROL
  38. E-VITAMIN [TOCOPHERYL ACETATE] [Concomitant]
     Dosage: UNK UNK, PRN

REACTIONS (4)
  - Drug interaction [None]
  - Gastric haemorrhage [None]
  - Drug hypersensitivity [Unknown]
  - Abdominal pain upper [None]
